FAERS Safety Report 9817942 (Version 2)
Quarter: 2014Q4

REPORT INFORMATION
  Report Type: Spontaneous
  Country: MX (occurrence: MX)
  Receive Date: 20140115
  Receipt Date: 20141011
  Transmission Date: 20150529
  Serious: Yes (Life-Threatening, Hospitalization, Other)
  Sender: FDA-Public Use
  Company Number: PHHY2014MX003838

PATIENT
  Age: 76 Year
  Sex: Male
  Weight: 91 kg

DRUGS (20)
  1. EBIXA [Concomitant]
     Active Substance: MEMANTINE HYDROCHLORIDE
     Indication: DEPRESSION
     Dosage: 1 DF, QD
     Route: 048
     Dates: start: 2012
  2. OLANZAPINE. [Concomitant]
     Active Substance: OLANZAPINE
     Indication: INSOMNIA
     Dosage: 0.5 DF, QHS
     Route: 048
     Dates: start: 201201
  3. DIOVAN [Suspect]
     Active Substance: VALSARTAN
     Indication: HYPERTENSION
     Dosage: 1 DF, DAILY
     Route: 048
     Dates: start: 201401, end: 201408
  4. DIOVAN [Suspect]
     Active Substance: VALSARTAN
     Indication: RENAL FAILURE
     Dosage: 1 DF, DAILY
     Route: 048
     Dates: start: 201409
  5. SOMAZINA [Concomitant]
     Indication: ISCHAEMIC HEART DISEASE PROPHYLAXIS
     Dosage: 1 DF, QD
     Route: 048
     Dates: start: 201201
  6. RITALIN [Suspect]
     Active Substance: METHYLPHENIDATE HYDROCHLORIDE
     Dosage: 2 DF, DAILY
     Route: 048
     Dates: start: 201409
  7. SHOT B [Concomitant]
     Indication: VITAMIN SUPPLEMENTATION
     Dosage: 1 DF, QD
     Route: 048
     Dates: start: 201201
  8. QUETIAPINE [Concomitant]
     Active Substance: QUETIAPINE
     Dates: start: 201408, end: 201409
  9. CONTUMAX [Concomitant]
     Indication: CONSTIPATION
     Dosage: 1 DF, QW
     Route: 048
  10. CLONAZEPAM. [Concomitant]
     Active Substance: CLONAZEPAM
     Indication: INSOMNIA
     Dosage: 1 DF, UNK
     Route: 048
     Dates: start: 201201
  11. LEVOMEPROMAZINE [Concomitant]
     Active Substance: LEVOMEPROMAZINE
     Indication: INSOMNIA
     Dosage: 0.25 DF, QHS
     Dates: start: 201201
  12. XALATAN [Concomitant]
     Active Substance: LATANOPROST
     Indication: GLAUCOMA
     Dosage: 1 DRP, QHS
     Route: 047
     Dates: start: 2007
  13. TIMOLOL [Concomitant]
     Active Substance: TIMOLOL
     Indication: GLAUCOMA
     Dosage: 2 DRP, Q12H
     Route: 047
     Dates: start: 2009
  14. SEROQUEL [Concomitant]
     Active Substance: QUETIAPINE FUMARATE
     Dates: start: 201408, end: 201409
  15. CLORTALIDONA [Concomitant]
     Indication: HYPERTENSION
     Dosage: 0.5 DF, QD
     Route: 048
     Dates: start: 2012
  16. SERTRALINE [Concomitant]
     Active Substance: SERTRALINE HYDROCHLORIDE
     Dates: start: 201408, end: 201409
  17. RITALIN [Suspect]
     Active Substance: METHYLPHENIDATE HYDROCHLORIDE
     Indication: SENILE DEMENTIA
     Dosage: 2 DF, DAILY
     Route: 048
     Dates: start: 2012, end: 201408
  18. EXELON PATCH [Suspect]
     Active Substance: RIVASTIGMINE
     Dosage: 4.6 MG, QD
     Route: 062
     Dates: start: 201301, end: 2014
  19. PRAVASTATIN [Concomitant]
     Active Substance: PRAVASTATIN\PRAVASTATIN SODIUM
     Indication: BLOOD CHOLESTEROL ABNORMAL
     Dosage: 1 DF, QHS
     Route: 048
     Dates: start: 201310
  20. ACETYLSALICYLIC ACID [Concomitant]
     Active Substance: ASPIRIN
     Indication: ISCHAEMIC HEART DISEASE PROPHYLAXIS
     Dosage: 0.5 DF, QD
     Route: 048
     Dates: start: 2009

REACTIONS (5)
  - Blood triglycerides increased [Recovered/Resolved]
  - Terminal state [Recovered/Resolved]
  - Drug intolerance [Recovered/Resolved]
  - Blood cholesterol increased [Recovered/Resolved]
  - Muscular weakness [Recovered/Resolved]

NARRATIVE: CASE EVENT DATE: 201408
